FAERS Safety Report 7496824-7 (Version None)
Quarter: 2011Q2

REPORT INFORMATION
  Report Type: 
  Country: None (occurrence: None)
  Receive Date: 20110523
  Receipt Date: 20110517
  Transmission Date: 20111010
  Serious: Yes (Death, Other)
  Sender: FDA-Public Use
  Company Number: GB-BRISTOL-MYERS SQUIBB COMPANY-15731888

PATIENT
  Age: 38 Year
  Sex: Male

DRUGS (3)
  1. CLOZARIL [Suspect]
     Indication: SCHIZOPHRENIA
     Route: 048
     Dates: start: 19921216
  2. ARIPIPRAZOLE [Suspect]
     Indication: SCHIZOPHRENIA
     Route: 048
     Dates: start: 20090101
  3. CHLORDIAZEPOXIDE HCL [Suspect]
     Indication: ANXIETY
     Route: 048

REACTIONS (8)
  - DEATH [None]
  - LYMPHOCYTE COUNT INCREASED [None]
  - ASPARTATE AMINOTRANSFERASE INCREASED [None]
  - WHITE BLOOD CELL COUNT INCREASED [None]
  - RED BLOOD CELL SEDIMENTATION RATE INCREASED [None]
  - NEUTROPHIL COUNT INCREASED [None]
  - MENTAL DISORDER [None]
  - BLOOD TRIGLYCERIDES INCREASED [None]
